FAERS Safety Report 4816497-9 (Version None)
Quarter: 2005Q4

REPORT INFORMATION
  Report Type: 
  Country: None (occurrence: None)
  Receive Date: 20051028
  Receipt Date: 20051018
  Transmission Date: 20060501
  Serious: Yes (Other)
  Sender: FDA-Public Use
  Company Number: HQWYE124320OCT05

PATIENT
  Age: 63 Year
  Sex: Female

DRUGS (2)
  1. PROTONIX [Suspect]
     Indication: GASTROOESOPHAGEAL REFLUX DISEASE
     Dosage: 40  MG 1X PER 1 DAY, INTRAVENOUS
     Route: 042
     Dates: start: 20051015
  2. SIMETHICONE (DIMETICONE, ACTIVATED) [Concomitant]

REACTIONS (2)
  - CONDITION AGGRAVATED [None]
  - THROMBOCYTOPENIA [None]
